FAERS Safety Report 8368138-4 (Version None)
Quarter: 2012Q2

REPORT INFORMATION
  Report Type: 
  Country: None (occurrence: None)
  Receive Date: 20120517
  Receipt Date: 20120504
  Transmission Date: 20120825
  Serious: Yes (Other)
  Sender: FDA-Public Use
  Company Number: DE-MYLANLABS-2012S1009557

PATIENT
  Age: 50 Year
  Sex: Female

DRUGS (10)
  1. VENLAFAXINE [Interacting]
     Indication: MAJOR DEPRESSION
     Dosage: 37.5 MG/DAY ON DAY 1
     Route: 065
  2. LITHIUM CARBONATE [Concomitant]
     Indication: MAJOR DEPRESSION
     Dosage: 800MG WITH FLUOXETINE; WITH VENLAFAXINE DOSAGE UNKNOWN
     Route: 065
  3. FLUOXETINE [Suspect]
     Indication: MAJOR DEPRESSION
     Dosage: 60 MG/DAY
     Route: 065
  4. VENLAFAXINE [Interacting]
     Dosage: 150MG ON DAY 8
     Route: 065
  5. LEVOTHYROXINE SODIUM [Concomitant]
     Indication: HYPOTHYROIDISM
     Dosage: 125 MICROG/DAY
     Route: 065
  6. ZOPICLONE [Concomitant]
     Dosage: 7.5MG
     Route: 065
  7. VENLAFAXINE [Interacting]
     Dosage: 75MG ON DAY 2
     Route: 065
  8. VENLAFAXINE [Interacting]
     Dosage: 225MG ON DAY 16
     Route: 065
  9. LORAZEPAM [Concomitant]
     Dosage: 3 MG/D
     Route: 065
  10. BISOPROLOL FUMARATE [Concomitant]
     Indication: ESSENTIAL HYPERTENSION
     Dosage: 2.5 MG/DAY
     Route: 065

REACTIONS (7)
  - ANTIDEPRESSANT DRUG LEVEL ABOVE THERAPEUTIC [None]
  - DRUG INTERACTION [None]
  - TREMOR [None]
  - AGITATION [None]
  - FEELING HOT [None]
  - CONSTIPATION [None]
  - SEROTONIN SYNDROME [None]
